FAERS Safety Report 8965970 (Version 1)
Quarter: 2012Q4

REPORT INFORMATION
  Report Type: Report from Study
  Country: BR (occurrence: BR)
  Receive Date: 20121214
  Receipt Date: 20121214
  Transmission Date: 20130627
  Serious: Yes (Death)
  Sender: FDA-Public Use
  Company Number: BR-ABBOTT-12P-020-1021421-00

PATIENT
  Age: 65 Year
  Sex: Female
  Weight: 60 kg

DRUGS (5)
  1. HUMIRA [Suspect]
     Indication: RHEUMATOID ARTHRITIS
     Route: 058
     Dates: start: 20120928
  2. BIOFLAC [Concomitant]
     Indication: RHEUMATOID ARTHRITIS
     Route: 048
     Dates: start: 201206
  3. ENDOFOLIN [Concomitant]
     Indication: ARTHRITIS
     Route: 048
     Dates: start: 201206
  4. PRELONE [Concomitant]
     Indication: ARTHRITIS
     Route: 048
     Dates: start: 201206
  5. LANSOPRAZOLE [Concomitant]
     Indication: GASTRIC DISORDER
     Route: 048
     Dates: start: 201206

REACTIONS (9)
  - Ill-defined disorder [Fatal]
  - Pyrexia [Not Recovered/Not Resolved]
  - Pharyngeal inflammation [Not Recovered/Not Resolved]
  - Yellow skin [Not Recovered/Not Resolved]
  - Abasia [Not Recovered/Not Resolved]
  - Diabetes mellitus [Unknown]
  - Liver disorder [Unknown]
  - Anaemia [Unknown]
  - Leukaemia [Unknown]
